FAERS Safety Report 21619528 (Version 1)
Quarter: 2022Q4

REPORT INFORMATION
  Report Type: Spontaneous
  Country: JP (occurrence: JP)
  Receive Date: 20221121
  Receipt Date: 20221121
  Transmission Date: 20230112
  Serious: Yes (Hospitalization, Other)
  Sender: FDA-Public Use
  Company Number: JP-TAKEDA-2022TJP077443

PATIENT
  Age: 86 Year
  Sex: Male
  Weight: 49 kg

DRUGS (21)
  1. TRINTELLIX [Suspect]
     Active Substance: VORTIOXETINE HYDROBROMIDE
     Indication: Depression
     Dosage: 10 MILLIGRAM, QD
     Route: 048
     Dates: start: 20220914, end: 20220920
  2. TRICHLORMETHIAZIDE [Suspect]
     Active Substance: TRICHLORMETHIAZIDE
     Indication: Hypertension
     Dosage: 2 MILLIGRAM, QD
     Route: 048
     Dates: start: 20180207, end: 20220917
  3. ENORAS [Concomitant]
     Dosage: 187.5 MILLILITER, QD
     Route: 048
     Dates: end: 20220917
  4. SILODOSIN OD [Concomitant]
     Dosage: 4 MILLIGRAM, BID
     Route: 048
     Dates: end: 20220917
  5. SILODOSIN OD [Concomitant]
     Dosage: 4 MILLIGRAM, BID
     Route: 048
     Dates: start: 20220927
  6. ROSUVASTATIN CALCIUM [Concomitant]
     Active Substance: ROSUVASTATIN CALCIUM
     Dosage: 2.5 MILLIGRAM, QD
     Route: 048
     Dates: end: 20220917
  7. ROSUVASTATIN CALCIUM [Concomitant]
     Active Substance: ROSUVASTATIN CALCIUM
     Dosage: 2.5 MILLIGRAM, QD
     Route: 048
     Dates: start: 20220927
  8. AMLODIPINE\TELMISARTAN [Concomitant]
     Active Substance: AMLODIPINE\TELMISARTAN
     Dosage: 1 DOSAGE FORM, QD
     Route: 048
     Dates: end: 20220917
  9. AMLODIPINE\TELMISARTAN [Concomitant]
     Active Substance: AMLODIPINE\TELMISARTAN
     Dosage: 1 DOSAGE FORM, QD
     Dates: start: 20220927
  10. VOGLIBOSE [Concomitant]
     Active Substance: VOGLIBOSE
     Dosage: 0.2 MILLIGRAM, TID
     Route: 048
     Dates: end: 20220917
  11. VOGLIBOSE [Concomitant]
     Active Substance: VOGLIBOSE
     Dosage: 0.2 MILLIGRAM, TID
     Route: 048
     Dates: start: 20220927
  12. Hangebyakujutsutemmato [Concomitant]
     Dosage: 2.5 GRAM, TID
     Route: 048
     Dates: end: 20220917
  13. HERBALS [Concomitant]
     Active Substance: HERBALS
     Dosage: 1.34 GRAM, TID
     Route: 048
     Dates: end: 20220917
  14. Keishikashakuyakuto [Concomitant]
     Dosage: 1.84 GRAM, TID
     Route: 048
     Dates: end: 20220917
  15. HERBALS [Concomitant]
     Active Substance: HERBALS
     Dosage: 2.5 GRAM, BID
     Route: 048
     Dates: end: 20220917
  16. CARBOCYSTEINE [Concomitant]
     Active Substance: CARBOCYSTEINE
     Dosage: 250 MILLIGRAM, TID
     Route: 048
     Dates: end: 20220917
  17. LOXOPROFEN SODIUM [Concomitant]
     Active Substance: LOXOPROFEN SODIUM
     Dosage: 60 MILLIGRAM
     Route: 048
     Dates: end: 20220917
  18. LOXOPROFEN SODIUM [Concomitant]
     Active Substance: LOXOPROFEN SODIUM
     Dosage: 100 MILLIGRAM, QD
     Route: 062
     Dates: end: 20220917
  19. HYALURONATE SODIUM [Concomitant]
     Active Substance: HYALURONATE SODIUM
     Dosage: UNK UNK, QID
     Route: 047
  20. PIRENOXINE [Concomitant]
     Active Substance: PIRENOXINE
     Dosage: UNK UNK, QID
     Route: 047
  21. FELBINAC [Concomitant]
     Active Substance: FELBINAC
     Dosage: 70 MILLIGRAM, BID
     Route: 062
     Dates: end: 20220917

REACTIONS (1)
  - Inappropriate antidiuretic hormone secretion [Recovered/Resolved]

NARRATIVE: CASE EVENT DATE: 20220917
